FAERS Safety Report 5346317-8 (Version None)
Quarter: 2007Q2

REPORT INFORMATION
  Report Type: 
  Country: None (occurrence: None)
  Receive Date: 20070430
  Receipt Date: 20070212
  Transmission Date: 20071010
  Serious: No
  Sender: FDA-Public Use
  Company Number: 260851

PATIENT
  Age: 71 Year
  Sex: Female
  Weight: 87.1 kg

DRUGS (1)
  1. LEVEMIR [Suspect]
     Indication: INSULIN-REQUIRING TYPE II DIABETES MELLITUS
     Dosage: 5 IU, QD, SUBCUTANEOUS
     Route: 058
     Dates: start: 20060101

REACTIONS (2)
  - ARTHRALGIA [None]
  - MYALGIA [None]
